FAERS Safety Report 15375283 (Version 2)
Quarter: 2018Q3

REPORT INFORMATION
  Report Type: Spontaneous
  Country: US (occurrence: US)
  Receive Date: 20180912
  Receipt Date: 20180913
  Transmission Date: 20181010
  Serious: Yes (Hospitalization, Other)
  Sender: FDA-Public Use
  Company Number: US-JNJFOC-20180901465

PATIENT
  Sex: Female

DRUGS (1)
  1. EVICEL [Suspect]
     Active Substance: FIBRINOGEN HUMAN\THROMBIN HUMAN
     Indication: PRODUCT USED FOR UNKNOWN INDICATION
     Route: 061
     Dates: start: 20180706, end: 20180706

REACTIONS (3)
  - Meningitis chemical [Not Recovered/Not Resolved]
  - Cellulitis [Unknown]
  - Inflammation [Not Recovered/Not Resolved]
